FAERS Safety Report 7883369-5 (Version None)
Quarter: 2011Q4

REPORT INFORMATION
  Report Type: 
  Country: None (occurrence: None)
  Receive Date: 20111102
  Receipt Date: 20111102
  Transmission Date: 20120403
  Serious: No
  Sender: FDA-Public Use
  Company Number: None

PATIENT
  Age: 38 Year
  Sex: Female
  Weight: 61.234 kg

DRUGS (1)
  1. CIPROFLOXACIN [Suspect]
     Indication: URINARY TRACT INFECTION
     Dosage: 500MG
     Route: 048
     Dates: start: 20111018, end: 20111019

REACTIONS (6)
  - ABNORMAL BEHAVIOUR [None]
  - HALLUCINATION [None]
  - FEELING DRUNK [None]
  - DYSARTHRIA [None]
  - THINKING ABNORMAL [None]
  - MUSCLE TWITCHING [None]
